FAERS Safety Report 25206362 (Version 1)
Quarter: 2025Q2

REPORT INFORMATION
  Report Type: Spontaneous
  Country: BR (occurrence: BR)
  Receive Date: 20250417
  Receipt Date: 20250417
  Transmission Date: 20250716
  Serious: Yes (Other)
  Sender: ORGANON
  Company Number: BR-ORGANON-O2504BRA001622

PATIENT
  Sex: Female

DRUGS (8)
  1. ETONOGESTREL [Suspect]
     Active Substance: ETONOGESTREL
     Route: 059
     Dates: start: 20220713
  2. ETONOGESTREL [Concomitant]
     Active Substance: ETONOGESTREL
     Route: 059
  3. ETONOGESTREL [Concomitant]
     Active Substance: ETONOGESTREL
     Route: 059
  4. ETONOGESTREL [Concomitant]
     Active Substance: ETONOGESTREL
     Route: 059
  5. TRILEPTAL [Concomitant]
     Active Substance: OXCARBAZEPINE
  6. PHENOBARBITAL [Concomitant]
     Active Substance: PHENOBARBITAL
  7. FLUOXETINE [Concomitant]
     Active Substance: FLUOXETINE HYDROCHLORIDE
  8. VALPROATE SODIUM [Concomitant]
     Active Substance: VALPROATE SODIUM

REACTIONS (3)
  - Pregnancy with implant contraceptive [Not Recovered/Not Resolved]
  - Unintended pregnancy [Not Recovered/Not Resolved]
  - Drug interaction [Unknown]
